FAERS Safety Report 17820087 (Version 1)
Quarter: 2020Q2

REPORT INFORMATION
  Report Type: Report from Study
  Country: None (occurrence: US)
  Receive Date: 20200525
  Receipt Date: 20200525
  Transmission Date: 20200714
  Serious: Yes (Hospitalization)
  Sender: FDA-Public Use
  Company Number: US-ABBVIE-20K-163-3413555-00

PATIENT
  Age: 78 Year
  Sex: Male
  Weight: 108.05 kg

DRUGS (11)
  1. METHOTREXAT [Concomitant]
     Active Substance: METHOTREXATE
     Indication: PSORIASIS
  2. LISINOPRIL. [Concomitant]
     Active Substance: LISINOPRIL
     Indication: HYPERTENSION
  3. HUMIRA [Suspect]
     Active Substance: ADALIMUMAB
     Indication: PSORIASIS
     Route: 058
  4. HUMIRA [Suspect]
     Active Substance: ADALIMUMAB
     Indication: PSORIATIC ARTHROPATHY
  5. OMEPRAZOLE. [Concomitant]
     Active Substance: OMEPRAZOLE
     Indication: DYSPEPSIA
  6. METOPROLOL TARTRATE. [Concomitant]
     Active Substance: METOPROLOL TARTRATE
     Indication: BLOOD PRESSURE MEASUREMENT
  7. FOLIC ACID. [Concomitant]
     Active Substance: FOLIC ACID
     Indication: CARDIAC DISORDER
  8. TYLENOL [Concomitant]
     Active Substance: ACETAMINOPHEN
     Indication: PAIN
  9. ATORVASTATIN [Concomitant]
     Active Substance: ATORVASTATIN
     Indication: BLOOD CHOLESTEROL INCREASED
  10. FLUOXETINE [Concomitant]
     Active Substance: FLUOXETINE HYDROCHLORIDE
     Indication: DEPRESSION
  11. DICLOFENAC [Concomitant]
     Active Substance: DICLOFENAC
     Indication: MYALGIA

REACTIONS (7)
  - Injury associated with device [Recovered/Resolved]
  - Gingival bleeding [Unknown]
  - Carotid artery occlusion [Not Recovered/Not Resolved]
  - Haematochezia [Unknown]
  - Musculoskeletal disorder [Not Recovered/Not Resolved]
  - Cerebrovascular accident [Recovering/Resolving]
  - Balance disorder [Recovering/Resolving]

NARRATIVE: CASE EVENT DATE: 20190527
